FAERS Safety Report 5723769-2 (Version None)
Quarter: 2008Q2

REPORT INFORMATION
  Report Type: 
  Country: None (occurrence: None)
  Receive Date: 20080430
  Receipt Date: 20080414
  Transmission Date: 20081010
  Serious: Yes (Hospitalization)
  Sender: FDA-Public Use
  Company Number: US-MERCK-0706USA03756

PATIENT
  Age: 89 Year
  Sex: Male
  Weight: 84 kg

DRUGS (1)
  1. FOSAMAX [Suspect]
     Indication: OSTEOPOROSIS
     Route: 048
     Dates: start: 20050518, end: 20060613

REACTIONS (22)
  - ABSCESS [None]
  - CELLULITIS [None]
  - CORONARY ARTERY BYPASS [None]
  - DENTAL CARIES [None]
  - EPISTAXIS [None]
  - HYPERCHOLESTEROLAEMIA [None]
  - HYPERTENSION [None]
  - INFECTED NEOPLASM [None]
  - INFECTION [None]
  - LYMPHOMA [None]
  - MALLORY-WEISS SYNDROME [None]
  - MULTIPLE MYELOMA [None]
  - NEUTROPENIA [None]
  - ORAL HERPES [None]
  - POOR PERSONAL HYGIENE [None]
  - RESORPTION BONE INCREASED [None]
  - RHINITIS [None]
  - SEBORRHOEIC KERATOSIS [None]
  - SPINAL COLUMN STENOSIS [None]
  - STOMATITIS [None]
  - TOOTH LOSS [None]
  - WEIGHT DECREASED [None]
